FAERS Safety Report 21209940 (Version 3)
Quarter: 2023Q1

REPORT INFORMATION
  Report Type: Report from Study
  Country: US (occurrence: US)
  Receive Date: 20220813
  Receipt Date: 20230109
  Transmission Date: 20230418
  Serious: Yes (Hospitalization, Other)
  Sender: FDA-Public Use
  Company Number: US-NOVARTISPH-NVSC2022US181575

PATIENT
  Sex: Female

DRUGS (1)
  1. ENTRESTO [Suspect]
     Active Substance: SACUBITRIL\VALSARTAN
     Indication: Product used for unknown indication
     Dosage: 1 DOSAGE FORM, BID (24/26MG)
     Route: 048

REACTIONS (14)
  - Coma [Unknown]
  - Loss of consciousness [Unknown]
  - Feeling abnormal [Unknown]
  - Pneumonia [Unknown]
  - Spinal cord compression [Unknown]
  - Pain [Unknown]
  - COVID-19 [Unknown]
  - Fluid retention [Unknown]
  - Urinary incontinence [Unknown]
  - Pollakiuria [Unknown]
  - Burning sensation [Unknown]
  - Peripheral swelling [Unknown]
  - Joint swelling [Unknown]
  - Weight increased [Unknown]
